FAERS Safety Report 6087491-8 (Version None)
Quarter: 2009Q1

REPORT INFORMATION
  Report Type: 
  Country: None (occurrence: None)
  Receive Date: 20090223
  Receipt Date: 20090210
  Transmission Date: 20090719
  Serious: Yes (Other)
  Sender: FDA-Public Use
  Company Number: FR-ELI_LILLY_AND_COMPANY-FR200901002398

PATIENT
  Age: 63 Year
  Sex: Female

DRUGS (7)
  1. CYMBALTA [Suspect]
     Indication: DEPRESSION
     Dosage: 60 MG, DAILY (1/D)
     Route: 048
     Dates: start: 20081202
  2. LEXOMIL [Concomitant]
     Indication: DEPRESSION
     Dosage: 6 MG, DAILY (1/D)
     Route: 048
     Dates: start: 20081211
  3. RIVOTRIL [Concomitant]
     Indication: DEPRESSION
     Dosage: 3 MG, DAILY (1/D)
     Route: 048
     Dates: start: 20081130, end: 20081205
  4. IMOVANE [Concomitant]
     Indication: DEPRESSION
     Dosage: 7.5 MG, DAILY (1/D)
     Route: 048
     Dates: start: 20081202
  5. PRAZEPAM [Concomitant]
     Indication: DEPRESSION
     Dosage: 40 MG, DAILY (1/D)
     Route: 048
     Dates: start: 20081205
  6. THERALENE [Concomitant]
     Indication: DEPRESSION
     Dosage: 15 MG, DAILY (1/D)
     Route: 048
     Dates: start: 20081211
  7. DOLIPRANE [Concomitant]
     Indication: HEADACHE
     Dosage: 1500 MG, DAILY (1/D)
     Route: 048
     Dates: start: 20081205, end: 20081212

REACTIONS (2)
  - FALL [None]
  - HYPOTENSION [None]
